FAERS Safety Report 8843042 (Version 1)
Quarter: 2012Q4

REPORT INFORMATION
  Report Type: 
  Country: FR (occurrence: FR)
  Receive Date: 20121016
  Receipt Date: 20121016
  Transmission Date: 20130627
  Serious: Yes (Other)
  Sender: FDA-Public Use
  Company Number: FR-GLAXOSMITHKLINE-B0830284A

PATIENT
  Sex: Female

DRUGS (6)
  1. TYVERB [Suspect]
     Indication: BREAST CANCER METASTATIC
     Dosage: 1250MG Per day
     Route: 048
     Dates: start: 20120720, end: 20120813
  2. ARIXTRA [Suspect]
     Indication: PERIPHERAL VASCULAR DISORDER
     Dosage: 5MG Per day
     Route: 058
     Dates: start: 20120803, end: 20120813
  3. XELODA [Concomitant]
     Indication: BREAST CANCER METASTATIC
     Route: 048
     Dates: start: 201112, end: 20120813
  4. INNOHEP [Concomitant]
     Indication: PERIPHERAL VASCULAR DISORDER
     Dates: start: 20120719
  5. OFLOXACINE [Concomitant]
     Indication: URINARY TRACT INFECTION
     Dosage: 500MG Twice per day
     Route: 048
     Dates: start: 20120730, end: 20120821
  6. SOLUPRED [Concomitant]
     Indication: METASTASES TO CENTRAL NERVOUS SYSTEM
     Dosage: 40MG per day
     Route: 048
     Dates: start: 201206

REACTIONS (6)
  - Toxic skin eruption [Recovered/Resolved]
  - Interstitial lung disease [Recovered/Resolved]
  - Rash papular [Recovered/Resolved]
  - Pyrexia [Recovered/Resolved]
  - Purpura [Recovered/Resolved]
  - Pruritus [Recovered/Resolved]
